FAERS Safety Report 14504643 (Version 1)
Quarter: 2018Q1

REPORT INFORMATION
  Report Type: Spontaneous
  Country: US (occurrence: US)
  Receive Date: 20180208
  Receipt Date: 20180208
  Transmission Date: 20180509
  Serious: No
  Sender: FDA-Public Use
  Company Number: US-009507513-1801USA009393

PATIENT
  Sex: Male

DRUGS (1)
  1. KEYTRUDA [Suspect]
     Active Substance: PEMBROLIZUMAB
     Dosage: 200 MG, UNKNOWN FREQUENCY
     Route: 042

REACTIONS (3)
  - Skin oedema [Unknown]
  - Erythema [Unknown]
  - Dermatitis [Unknown]
